FAERS Safety Report 8730037 (Version 2)
Quarter: 2012Q4

REPORT INFORMATION
  Report Type: 
  Country: US (occurrence: US)
  Receive Date: 20120817
  Receipt Date: 20121116
  Transmission Date: 20130627
  Serious: Yes (Other)
  Sender: FDA-Public Use
  Company Number: US-GLAXOSMITHKLINE-A0984831A

PATIENT
  Age: 63 Year
  Sex: Male
  Weight: 108.2 kg

DRUGS (1)
  1. VOTRIENT [Suspect]
     Indication: RENAL CELL CARCINOMA
     Dosage: 800MG per day
     Route: 048
     Dates: end: 2013

REACTIONS (7)
  - Abdominal discomfort [Recovering/Resolving]
  - Gastrooesophageal reflux disease [Unknown]
  - Dyspepsia [Unknown]
  - Eye pain [Unknown]
  - Tongue ulceration [Unknown]
  - Blister [Unknown]
  - Metastasis [Unknown]
